FAERS Safety Report 12725669 (Version 4)
Quarter: 2016Q4

REPORT INFORMATION
  Report Type: Spontaneous
  Country: US (occurrence: US)
  Receive Date: 20160908
  Receipt Date: 20161021
  Transmission Date: 20170207
  Serious: No
  Sender: FDA-Public Use
  Company Number: US-BAYER-2016-174902

PATIENT
  Age: 85 Year
  Sex: Male
  Weight: 80.72 kg

DRUGS (5)
  1. MIRALAX [Suspect]
     Active Substance: POLYETHYLENE GLYCOL 3350
     Indication: CONSTIPATION
     Dosage: 1/2 DOSE, QD
     Route: 048
     Dates: start: 20160906, end: 20160906
  2. MIRALAX [Suspect]
     Active Substance: POLYETHYLENE GLYCOL 3350
     Indication: CONSTIPATION
     Dosage: 1 DF, QD
     Route: 048
  3. MIRALAX [Suspect]
     Active Substance: POLYETHYLENE GLYCOL 3350
     Indication: CONSTIPATION
     Dosage: UNK
     Route: 048
  4. LIPITOR [Concomitant]
     Active Substance: ATORVASTATIN CALCIUM
  5. PROCARDIA [Concomitant]
     Active Substance: NIFEDIPINE
     Dosage: 30 MG, UNK

REACTIONS (7)
  - Underdose [Not Recovered/Not Resolved]
  - Expired product administered [Not Recovered/Not Resolved]
  - Frequent bowel movements [Recovered/Resolved]
  - Flatulence [Unknown]
  - Drug ineffective [None]
  - Product use issue [None]
  - Abdominal distension [Unknown]

NARRATIVE: CASE EVENT DATE: 20160906
